FAERS Safety Report 8171904-1 (Version None)
Quarter: 2012Q1

REPORT INFORMATION
  Report Type: 
  Country: None (occurrence: None)
  Receive Date: 20120113
  Receipt Date: 20110923
  Transmission Date: 20120608
  Serious: Yes (Hospitalization, Other)
  Sender: FDA-Public Use
  Company Number: 2011S1000076

PATIENT
  Age: 57 Year
  Sex: Male
  Weight: 68.9467 kg

DRUGS (21)
  1. PHENERGAN /00033002/ [Concomitant]
  2. KRYSTEXXA [Suspect]
     Indication: GOUTY ARTHRITIS
     Dosage: 8 MG;X1;IV ; 8 MG;X1;IV ; 8 MG;X1;IV
     Route: 042
     Dates: start: 20110920, end: 20110920
  3. KRYSTEXXA [Suspect]
     Indication: GOUTY ARTHRITIS
     Dosage: 8 MG;X1;IV ; 8 MG;X1;IV ; 8 MG;X1;IV
     Route: 042
     Dates: start: 20110906, end: 20110906
  4. KRYSTEXXA [Suspect]
     Indication: GOUTY ARTHRITIS
     Dosage: 8 MG;X1;IV ; 8 MG;X1;IV ; 8 MG;X1;IV
     Route: 042
     Dates: start: 20110823, end: 20110823
  5. EXTRA STRENGTH TYLENOL [Concomitant]
  6. LABETALOL HCL [Concomitant]
  7. PRILOSEC [Concomitant]
  8. FOSAMAX [Concomitant]
  9. SOLU-CORTEF [Concomitant]
  10. PERCOCET [Concomitant]
  11. DEPAKOTE [Concomitant]
  12. PREDNISONE TAB [Concomitant]
  13. CALCIUM [Concomitant]
  14. FLOMAX [Concomitant]
  15. LIPITOR [Concomitant]
  16. COLCRYS [Concomitant]
  17. ZOCOR [Concomitant]
  18. VITAMIN D [Concomitant]
  19. MINOXIDIL [Concomitant]
  20. BENADRYL /009455501/ [Concomitant]
  21. COLCHICINE [Concomitant]

REACTIONS (2)
  - INFUSION RELATED REACTION [None]
  - GOUT [None]
